FAERS Safety Report 6189735-0 (Version None)
Quarter: 2009Q2

REPORT INFORMATION
  Report Type: 
  Country: None (occurrence: None)
  Receive Date: 20090514
  Receipt Date: 20090506
  Transmission Date: 20091009
  Serious: Yes (Hospitalization)
  Sender: FDA-Public Use
  Company Number: US-ROCHE-632167

PATIENT
  Age: 71 Year
  Sex: Female

DRUGS (6)
  1. BONIVA [Suspect]
     Indication: OSTEOPOROSIS
     Route: 065
     Dates: start: 20060101
  2. NORVASC [Concomitant]
  3. METAPROTERENOL [Concomitant]
     Dosage: DRUG: METAPROPAL
  4. COZAAR [Concomitant]
  5. HYDROCHLOROTHIAZIDE [Concomitant]
  6. CALCIUM/VITAMIN D [Concomitant]

REACTIONS (1)
  - FEMUR FRACTURE [None]
